FAERS Safety Report 7157595-7 (Version None)
Quarter: 2010Q4

REPORT INFORMATION
  Report Type: 
  Country: None (occurrence: None)
  Receive Date: 20101214
  Receipt Date: 20100920
  Transmission Date: 20110411
  Serious: No
  Sender: FDA-Public Use
  Company Number: US-ASTRAZENECA-2010SE08777

PATIENT
  Age: 72 Year
  Sex: Female

DRUGS (1)
  1. CRESTOR [Suspect]
     Indication: BLOOD CHOLESTEROL INCREASED
     Route: 048
     Dates: start: 20090101

REACTIONS (12)
  - ABDOMINAL PAIN UPPER [None]
  - AMNESIA [None]
  - BRONCHITIS [None]
  - COUGH [None]
  - DIARRHOEA [None]
  - EXERCISE TOLERANCE DECREASED [None]
  - FATIGUE [None]
  - HAEMATOMA [None]
  - JOINT INSTABILITY [None]
  - LOW DENSITY LIPOPROTEIN INCREASED [None]
  - MALAISE [None]
  - RHINORRHOEA [None]
